FAERS Safety Report 12848060 (Version 1)
Quarter: 2016Q4

REPORT INFORMATION
  Report Type: Spontaneous
  Country: US (occurrence: US)
  Receive Date: 20161014
  Receipt Date: 20161014
  Transmission Date: 20170207
  Serious: No
  Sender: FDA-Public Use
  Company Number: US-JNJFOC-20160723523

PATIENT
  Age: 12 Month
  Sex: Male
  Weight: 12.7 kg

DRUGS (2)
  1. CHILDRENS MOTRIN [Suspect]
     Active Substance: IBUPROFEN
     Route: 048
  2. CHILDRENS MOTRIN [Suspect]
     Active Substance: IBUPROFEN
     Indication: ACCIDENTAL EXPOSURE TO PRODUCT BY CHILD
     Dosage: UP TO HALF BOTTLE
     Route: 048
     Dates: start: 20160726, end: 20160726

REACTIONS (2)
  - Overdose [Unknown]
  - Accidental exposure to product by child [Unknown]
